FAERS Safety Report 24104949 (Version 1)
Quarter: 2024Q3

REPORT INFORMATION
  Report Type: Spontaneous
  Country: IT (occurrence: IT)
  Receive Date: 20240717
  Receipt Date: 20240717
  Transmission Date: 20241016
  Serious: Yes (Other)
  Sender: RECKITT BENCKISER
  Company Number: IT-INDIVIOR US-INDV-145966-2024

PATIENT

DRUGS (2)
  1. SUBOXONE [Suspect]
     Active Substance: BUPRENORPHINE HYDROCHLORIDE\NALOXONE HYDROCHLORIDE
     Indication: Product used for unknown indication
     Dosage: 16 MILLIGRAM, UNKNOWN
     Route: 065
     Dates: end: 2024
  2. SUBOXONE [Suspect]
     Active Substance: BUPRENORPHINE HYDROCHLORIDE\NALOXONE HYDROCHLORIDE
     Dosage: 6 MILLIGRAM, UNKNOWN
     Route: 065
     Dates: start: 2024

REACTIONS (3)
  - Hydrocephalus [Not Recovered/Not Resolved]
  - Fall [Recovered/Resolved]
  - Drug abuse [Unknown]

NARRATIVE: CASE EVENT DATE: 20240101
